FAERS Safety Report 24651951 (Version 1)
Quarter: 2024Q4

REPORT INFORMATION
  Report Type: Spontaneous
  Country: JP (occurrence: JP)
  Receive Date: 20241122
  Receipt Date: 20241122
  Transmission Date: 20250115
  Serious: Yes (Hospitalization, Other)
  Sender: MDD OPERATIONS
  Company Number: JP-ZAMBON-202402962COR

PATIENT
  Age: 8 Decade
  Sex: Female

DRUGS (2)
  1. SAFINAMIDE [Suspect]
     Active Substance: SAFINAMIDE
     Indication: Parkinson^s disease
     Dosage: NOT PROVIDED
     Route: 048
  2. SAFINAMIDE [Suspect]
     Active Substance: SAFINAMIDE
     Indication: Therapeutic response shortened

REACTIONS (1)
  - Cranial nerve operation [Unknown]

NARRATIVE: CASE EVENT DATE: 20241029
